FAERS Safety Report 14493230 (Version 1)
Quarter: 2018Q1

REPORT INFORMATION
  Report Type: Spontaneous
  Country: FR (occurrence: FR)
  Receive Date: 20180206
  Receipt Date: 20180206
  Transmission Date: 20180509
  Serious: Yes (Life-Threatening, Hospitalization)
  Sender: FDA-Public Use
  Company Number: FR-ASTRAZENECA-2018SE13052

PATIENT
  Age: 64 Year
  Sex: Female
  Weight: 70 kg

DRUGS (7)
  1. OLANZAPINE. [Concomitant]
     Active Substance: OLANZAPINE
  2. LOXAPINE. [Concomitant]
     Active Substance: LOXAPINE
  3. HYDROXYZINE [Concomitant]
     Active Substance: HYDROXYZINE HYDROCHLORIDE
  4. INEXIUM [Suspect]
     Active Substance: ESOMEPRAZOLE
     Indication: PRODUCT USED FOR UNKNOWN INDICATION
     Dosage: 40.0MG UNKNOWN
     Route: 048
  5. ZOPICLONE [Concomitant]
     Active Substance: ZOPICLONE
  6. HALDOL [Concomitant]
     Active Substance: HALOPERIDOL
  7. LEVOTHYROX [Concomitant]
     Active Substance: LEVOTHYROXINE

REACTIONS (4)
  - Septic shock [Recovered/Resolved]
  - Pneumatosis [Recovered/Resolved]
  - Disseminated intravascular coagulation [Recovered/Resolved]
  - Clostridium difficile colitis [Recovered/Resolved]

NARRATIVE: CASE EVENT DATE: 20161119
